FAERS Safety Report 8541789-X (Version None)
Quarter: 2012Q3

REPORT INFORMATION
  Report Type: 
  Country: None (occurrence: None)
  Receive Date: 20120726
  Receipt Date: 20110830
  Transmission Date: 20120928
  Serious: No
  Sender: FDA-Public Use
  Company Number: US-ASTRAZENECA-2011SE52265

PATIENT
  Age: 21 Year
  Sex: Female

DRUGS (2)
  1. SEROQUEL [Suspect]
     Route: 048
  2. XANAX [Concomitant]
     Route: 065

REACTIONS (4)
  - ANXIETY [None]
  - NERVOUSNESS [None]
  - DRUG DOSE OMISSION [None]
  - MOOD SWINGS [None]
